FAERS Safety Report 25146947 (Version 3)
Quarter: 2025Q2

REPORT INFORMATION
  Report Type: Spontaneous
  Country: US (occurrence: US)
  Receive Date: 20250401
  Receipt Date: 20250428
  Transmission Date: 20250716
  Serious: No
  Sender: PFIZER
  Company Number: US-PFIZER INC-202500065992

PATIENT
  Age: 14 Year
  Sex: Male
  Weight: 52.1 kg

DRUGS (2)
  1. GENOTROPIN [Suspect]
     Active Substance: SOMATROPIN
     Indication: Hypopituitarism
     Dosage: 2.8 MG, ALTERNATE DAY (2.9 MG/DAY, 6 DAYS/WEEK)
     Route: 058
  2. GENOTROPIN [Suspect]
     Active Substance: SOMATROPIN
     Indication: Growth hormone deficiency
     Dosage: 3 MG, ALTERNATE DAY (2.9 MG/DAY, 6 DAYS/WEEK)
     Route: 058

REACTIONS (1)
  - Aspartate aminotransferase increased [Unknown]
